FAERS Safety Report 6780965-3 (Version None)
Quarter: 2010Q2

REPORT INFORMATION
  Report Type: 
  Country: None (occurrence: None)
  Receive Date: 20100621
  Receipt Date: 20100608
  Transmission Date: 20101027
  Serious: Yes (Other)
  Sender: FDA-Public Use
  Company Number: ES-ELI_LILLY_AND_COMPANY-ES201006002308

PATIENT
  Sex: Female
  Weight: 85 kg

DRUGS (9)
  1. FORTEO [Suspect]
     Indication: OSTEOPOROSIS
     Dosage: 20 UG, DAILY (1/D)
     Route: 058
     Dates: start: 20090606
  2. SIMVASTATINA [Concomitant]
     Indication: BLOOD CHOLESTEROL
     Dosage: 1 D/F, DAILY (1/D)
     Route: 048
  3. ZYLORIC [Concomitant]
     Indication: BLOOD URIC ACID
     Dosage: 1 D/F, DAILY (1/D)
     Route: 048
  4. ATACAND [Concomitant]
     Indication: HYPERTENSION
     Dosage: 1 D/F, DAILY (1/D)
     Route: 048
  5. COROPRES [Concomitant]
     Indication: CARDIAC DISORDER
     Dosage: 1 D/F, DAILY (1/D)
     Route: 048
  6. LEVOTHYROXINE SODIUM [Concomitant]
     Indication: THYROID DISORDER
     Dosage: UNK, AS NEEDED (150 MG EVERY  4 DAYS +. 100 MG TWICE A WEEK)
     Route: 048
  7. ENANTYUM [Concomitant]
     Indication: BONE DISORDER
     Dosage: 25 MG, DAILY (1/D)
     Route: 048
  8. OMEPRAZOLE [Concomitant]
     Indication: PROPHYLAXIS
     Dosage: 1 D/F, DAILY (1/D)
     Route: 048
  9. ACETAMINOPHEN [Concomitant]
     Indication: PAIN
     Dosage: UNK, AS NEEDED
     Route: 048

REACTIONS (2)
  - FALL [None]
  - SPINAL FRACTURE [None]
